FAERS Safety Report 12820207 (Version 1)
Quarter: 2016Q4

REPORT INFORMATION
  Report Type: Report from Study
  Country: US (occurrence: US)
  Receive Date: 20161006
  Receipt Date: 20161006
  Transmission Date: 20170207
  Serious: No
  Sender: FDA-Public Use
  Company Number: US-AMGEN-USASL2015129738

PATIENT
  Sex: Female

DRUGS (1)
  1. PROLIA [Suspect]
     Active Substance: DENOSUMAB
     Indication: PRODUCT USED FOR UNKNOWN INDICATION
     Dosage: UNK
     Route: 065

REACTIONS (7)
  - Device failure [Unknown]
  - Pain in jaw [Unknown]
  - Malaise [Unknown]
  - Jaw disorder [Unknown]
  - Dental operation [Unknown]
  - Tooth disorder [Unknown]
  - Ear pain [Unknown]

NARRATIVE: CASE EVENT DATE: 2015
